FAERS Safety Report 6897644-4 (Version None)
Quarter: 2010Q3

REPORT INFORMATION
  Report Type: 
  Country: None (occurrence: None)
  Receive Date: 20100802
  Receipt Date: 20070630
  Transmission Date: 20110219
  Serious: No
  Sender: FDA-Public Use
  Company Number: US-PFIZER INC-2007027894

PATIENT
  Sex: Male
  Weight: 104.3 kg

DRUGS (4)
  1. LYRICA [Suspect]
     Indication: NEUROPATHY PERIPHERAL
     Dates: start: 20061001
  2. TAMSULOSIN HCL [Suspect]
     Indication: PROSTATOMEGALY
     Dates: start: 20050101
  3. ADVIL LIQUI-GELS [Concomitant]
  4. VITAMIN B [Concomitant]
     Indication: VITAMIN B COMPLEX DEFICIENCY

REACTIONS (4)
  - INCREASED APPETITE [None]
  - OEDEMA PERIPHERAL [None]
  - PAIN IN EXTREMITY [None]
  - SPONTANEOUS PENILE ERECTION [None]
